FAERS Safety Report 18223411 (Version 1)
Quarter: 2020Q3

REPORT INFORMATION
  Report Type: Spontaneous
  Country: US (occurrence: US)
  Receive Date: 20200902
  Receipt Date: 20200902
  Transmission Date: 20201103
  Serious: No
  Sender: FDA-Public Use
  Company Number: US-BAUSCH-BL-2020-024472

PATIENT
  Sex: Female

DRUGS (2)
  1. RETIN?A MICRO [Suspect]
     Active Substance: TRETINOIN
     Indication: SKIN WRINKLING
     Route: 061
  2. RETIN?A MICRO [Suspect]
     Active Substance: TRETINOIN
     Indication: PRODUCT USE IN UNAPPROVED INDICATION

REACTIONS (2)
  - Product use in unapproved indication [Unknown]
  - Skin discolouration [Not Recovered/Not Resolved]
